FAERS Safety Report 8911939 (Version 1)
Quarter: 2012Q4

REPORT INFORMATION
  Report Type: 
  Country: US (occurrence: US)
  Receive Date: 20121115
  Receipt Date: 20121115
  Transmission Date: 20130627
  Serious: Yes (Death)
  Sender: FDA-Public Use
  Company Number: US-009507513-1211USA002654

PATIENT

DRUGS (1)
  1. SAPHRIS [Suspect]
     Indication: DEPRESSION
     Dosage: UNK
     Route: 048
     Dates: start: 2012

REACTIONS (8)
  - Death [Fatal]
  - Post-traumatic stress disorder [Unknown]
  - Gait disturbance [Unknown]
  - Eye disorder [Unknown]
  - Skin disorder [Unknown]
  - Stab wound [Unknown]
  - Social avoidant behaviour [Unknown]
  - Abnormal behaviour [Unknown]
